FAERS Safety Report 7806108-2 (Version None)
Quarter: 2011Q4

REPORT INFORMATION
  Report Type: 
  Country: None (occurrence: None)
  Receive Date: 20111007
  Receipt Date: 20111007
  Transmission Date: 20120403
  Serious: Yes (Other)
  Sender: FDA-Public Use
  Company Number: None

PATIENT
  Sex: Male
  Weight: 81.6475 kg

DRUGS (2)
  1. AMLODIPINE BESYLATE [Suspect]
     Indication: HYPERTENSION
     Dosage: 10 MG 1 DAILY CONTINUING
  2. SIMVASTATIN [Suspect]
     Indication: HYPERTENSION
     Dosage: 80 MG 1 DAILY OVER 90 DAYS

REACTIONS (1)
  - RENAL CYST [None]
